FAERS Safety Report 6322585-0 (Version None)
Quarter: 2009Q3

REPORT INFORMATION
  Report Type: 
  Country: None (occurrence: None)
  Receive Date: 20090824
  Receipt Date: 20090302
  Transmission Date: 20100115
  Serious: No
  Sender: FDA-Public Use
  Company Number: US-ABBOTT-09P-163-0560183-00

PATIENT
  Sex: Male
  Weight: 99.88 kg

DRUGS (1)
  1. NIASPAN [Suspect]
     Indication: BLOOD TRIGLYCERIDES INCREASED
     Dates: start: 20081201, end: 20090226

REACTIONS (1)
  - BLOOD TRIGLYCERIDES INCREASED [None]
